FAERS Safety Report 6546972-0 (Version None)
Quarter: 2010Q1

REPORT INFORMATION
  Report Type: 
  Country: None (occurrence: None)
  Receive Date: 20100122
  Receipt Date: 20100118
  Transmission Date: 20100710
  Serious: Yes (Death)
  Sender: FDA-Public Use
  Company Number: A0840565A

PATIENT
  Age: 82 Year
  Sex: Male

DRUGS (1)
  1. AVANDIA [Suspect]
     Route: 048
     Dates: end: 20090420

REACTIONS (3)
  - AORTIC VALVE INCOMPETENCE [None]
  - CARDIAC FAILURE [None]
  - CHEST PAIN [None]
